FAERS Safety Report 5858881-0 (Version None)
Quarter: 2008Q3

REPORT INFORMATION
  Report Type: 
  Country: None (occurrence: None)
  Receive Date: 20080818
  Receipt Date: 20080422
  Transmission Date: 20090109
  Serious: No
  Sender: FDA-Public Use
  Company Number: WAES 0803USA02230

PATIENT
  Age: 44 Year
  Sex: Female
  Weight: 75.7507 kg

DRUGS (5)
  1. JANUVIA [Suspect]
     Indication: TYPE 2 DIABETES MELLITUS
     Dosage: 100 MG/DAILY/PO
     Route: 048
     Dates: start: 20071208, end: 20071209
  2. ESTRATEST H.S. [Concomitant]
  3. GLUCOPHAGE XR [Concomitant]
  4. ZOCOR [Concomitant]
  5. GLUCEPTATE SODIUM [Concomitant]

REACTIONS (2)
  - CHEST DISCOMFORT [None]
  - DYSPNOEA [None]
